FAERS Safety Report 13341138 (Version 1)
Quarter: 2017Q1

REPORT INFORMATION
  Report Type: Spontaneous
  Country: US (occurrence: US)
  Receive Date: 20170316
  Receipt Date: 20170316
  Transmission Date: 20170428
  Serious: Yes (Other)
  Sender: FDA-Public Use
  Company Number: US-AMGEN-USASP2017037063

PATIENT
  Sex: Female

DRUGS (1)
  1. XGEVA [Suspect]
     Active Substance: DENOSUMAB
     Indication: BREAST CANCER
     Dosage: UNK
     Route: 065
     Dates: start: 2016

REACTIONS (7)
  - Tongue injury [Unknown]
  - Metastases to bone [Not Recovered/Not Resolved]
  - Device failure [Unknown]
  - Breast cancer metastatic [Not Recovered/Not Resolved]
  - Metastases to spine [Not Recovered/Not Resolved]
  - Dental caries [Unknown]
  - Tooth erosion [Unknown]

NARRATIVE: CASE EVENT DATE: 2016
